FAERS Safety Report 5810952-0 (Version None)
Quarter: 2008Q3

REPORT INFORMATION
  Report Type: 
  Country: None (occurrence: None)
  Receive Date: 20080716
  Receipt Date: 20080708
  Transmission Date: 20090109
  Serious: Yes (Other)
  Sender: FDA-Public Use
  Company Number: PHMT2008CA00527

PATIENT
  Sex: Male

DRUGS (7)
  1. CARBAMAZEPINE [Suspect]
     Indication: PSYCHOTIC DISORDER
     Dosage: 400 MG DAILY
     Dates: end: 20080520
  2. RISPERIDONE [Concomitant]
     Dosage: 62.5 MG IM Q 2 WEEKS
     Route: 030
  3. OLANZAPINE [Concomitant]
     Dosage: 25 MG DAILY
     Route: 048
  4. SEPTRA DS [Concomitant]
     Dosage: ONE DAILY
     Route: 048
  5. PARIET [Concomitant]
     Dosage: 20 MG DAILY
  6. TYLENOL [Concomitant]
     Dosage: PRN
  7. FLUCONAZOLE [Concomitant]
     Dosage: 100 MG, PRN
     Route: 048

REACTIONS (6)
  - DELUSION OF GRANDEUR [None]
  - HALLUCINATION, AUDITORY [None]
  - HALLUCINATIONS, MIXED [None]
  - REFUSAL OF TREATMENT BY PATIENT [None]
  - SCAR [None]
  - SUICIDAL BEHAVIOUR [None]
